FAERS Safety Report 5581437-4 (Version None)
Quarter: 2008Q1

REPORT INFORMATION
  Report Type: 
  Country: None (occurrence: None)
  Receive Date: 20080104
  Receipt Date: 20071227
  Transmission Date: 20080703
  Serious: Yes (Life-Threatening, Other)
  Sender: FDA-Public Use
  Company Number: US-NOVOPROD-270582

PATIENT

DRUGS (14)
  1. PRANDIN [Suspect]
     Indication: INSULIN-REQUIRING TYPE 2 DIABETES MELLITUS
     Dosage: 4 MG, BID
     Route: 048
     Dates: start: 20050101, end: 20071201
  2. PRANDIN [Suspect]
     Dosage: 9 MG, BID
     Route: 048
     Dates: start: 20071201, end: 20071201
  3. PRANDIN [Suspect]
     Dosage: 4 MG, BID
     Route: 048
     Dates: start: 20071201, end: 20071226
  4. NOVOLIN 70/30 [Suspect]
     Indication: INSULIN-REQUIRING TYPE 2 DIABETES MELLITUS
     Dosage: 4 IU, BID
     Route: 058
     Dates: end: 20071201
  5. NOVOLIN 70/30 [Suspect]
     Dosage: 9 IU, BID
     Route: 058
     Dates: start: 20071201, end: 20071201
  6. NOVOLIN 70/30 [Suspect]
     Dosage: 12 IU, BID
     Route: 058
     Dates: start: 20071201, end: 20071201
  7. NOVOLIN 70/30 [Suspect]
     Dosage: 13 IU, BID
     Route: 058
     Dates: start: 20071201, end: 20071201
  8. NOVOLIN 70/30 [Suspect]
     Dosage: 4 IU, BID
     Route: 058
     Dates: start: 20071201
  9. SOTALOL HYDROCHLORIDE [Concomitant]
     Indication: ARRHYTHMIA
     Route: 048
     Dates: start: 19700101
  10. CARDURA                            /00639301/ [Concomitant]
     Indication: PROSTATOMEGALY
     Route: 048
     Dates: start: 19900101
  11. PROSCAR [Concomitant]
     Indication: PROSTATOMEGALY
     Route: 048
     Dates: start: 19900101
  12. PRAVASTATIN [Concomitant]
     Indication: BLOOD CHOLESTEROL INCREASED
     Route: 048
     Dates: start: 20070101
  13. NEXIUM [Concomitant]
     Route: 048
  14. FUROSEMIDE [Concomitant]
     Indication: OEDEMA PERIPHERAL
     Dosage: UNK, PRN
     Route: 048
     Dates: start: 19970101

REACTIONS (2)
  - BLOOD GLUCOSE INCREASED [None]
  - HYPOGLYCAEMIC UNCONSCIOUSNESS [None]
